FAERS Safety Report 10298789 (Version 3)
Quarter: 2014Q3

REPORT INFORMATION
  Report Type: Spontaneous
  Country: US (occurrence: US)
  Receive Date: 20140711
  Receipt Date: 20140820
  Transmission Date: 20150326
  Serious: Yes (Other)
  Sender: FDA-Public Use
  Company Number: CHPA2014US009141

PATIENT
  Age: 70 Year
  Sex: Female

DRUGS (4)
  1. TRANSDERM SCOP [Suspect]
     Active Substance: SCOPOLAMINE
     Indication: PROCEDURAL NAUSEA
     Dosage: 1 DF, UNK
     Route: 062
     Dates: start: 20140630, end: 20140703
  2. XANAX [Suspect]
     Active Substance: ALPRAZOLAM
     Indication: ANXIETY
  3. NEURONTIN [Concomitant]
     Active Substance: GABAPENTIN
     Dosage: UNK
  4. DEPAKOTE [Concomitant]
     Active Substance: DIVALPROEX SODIUM
     Dosage: UNK

REACTIONS (16)
  - Asthenia [Recovered/Resolved]
  - Arrhythmia [Not Recovered/Not Resolved]
  - Asthma [Recovered/Resolved]
  - Drug withdrawal syndrome [Recovered/Resolved]
  - Drug hypersensitivity [Recovered/Resolved]
  - Paradoxical drug reaction [Recovered/Resolved]
  - Hypopnoea [Recovered/Resolved]
  - Discomfort [Recovered/Resolved]
  - Nausea [Recovering/Resolving]
  - Anxiety [Recovered/Resolved]
  - Agitation [Recovered/Resolved]
  - Feeling jittery [Recovered/Resolved]
  - Confusional state [Recovering/Resolving]
  - Feeling abnormal [Recovered/Resolved]
  - Muscular weakness [Recovered/Resolved]
  - Dizziness [Recovering/Resolving]

NARRATIVE: CASE EVENT DATE: 2014
